FAERS Safety Report 10812621 (Version 1)
Quarter: 2015Q1

REPORT INFORMATION
  Report Type: Report from Study
  Country: US (occurrence: US)
  Receive Date: 20150218
  Receipt Date: 20150218
  Transmission Date: 20150721
  Serious: No
  Sender: FDA-Public Use
  Company Number: US-ABBVIE-14K-163-1276081-00

PATIENT
  Sex: Female

DRUGS (6)
  1. HUMIRA [Suspect]
     Active Substance: ADALIMUMAB
     Indication: PSORIASIS
     Dates: start: 201211, end: 20140621
  2. ESTROGEN NOS W/NORETHISTERONE [Concomitant]
     Indication: HORMONE REPLACEMENT THERAPY
     Dosage: 0.5 MILLIGRAM, 0.1 MILLIGRAM
  3. NORTRIPTYLINE [Concomitant]
     Active Substance: NORTRIPTYLINE
     Indication: INSOMNIA
     Dosage: AT BEDTIME
  4. ACTONEL [Concomitant]
     Active Substance: RISEDRONATE SODIUM
     Indication: BONE DISORDER
  5. DICLOFENAC [Concomitant]
     Active Substance: DICLOFENAC
     Indication: PAIN
  6. PRAVASTATIN [Concomitant]
     Active Substance: PRAVASTATIN\PRAVASTATIN SODIUM
     Indication: BLOOD CHOLESTEROL INCREASED

REACTIONS (6)
  - Myalgia [Not Recovered/Not Resolved]
  - Mobility decreased [Unknown]
  - Psoriatic arthropathy [Recovering/Resolving]
  - Peripheral swelling [Unknown]
  - Pain in extremity [Recovering/Resolving]
  - Rheumatoid arthritis [Recovering/Resolving]

NARRATIVE: CASE EVENT DATE: 2013
